FAERS Safety Report 4982141-3 (Version None)
Quarter: 2006Q2

REPORT INFORMATION
  Report Type: 
  Country: None (occurrence: None)
  Receive Date: 20060421
  Receipt Date: 20060413
  Transmission Date: 20061013
  Serious: Yes (Hospitalization)
  Sender: FDA-Public Use
  Company Number: 224094

PATIENT
  Age: 50 Year
  Sex: Female
  Weight: 104.8 kg

DRUGS (4)
  1. XOLAIR [Suspect]
     Indication: ASTHMA
     Dosage: 300 MG, Q2W, SUBCUTANEOUS
     Route: 058
     Dates: start: 20050114, end: 20060405
  2. ADVAIR DISKUS (FLUTICASONE PROPIONATE, SALMETEROL XINAFOATE) [Concomitant]
  3. PREDNISONE TAB [Concomitant]
  4. SINGULAIR [Concomitant]

REACTIONS (8)
  - ASTHMA [None]
  - BLOOD PH DECREASED [None]
  - BRONCHOSPASM [None]
  - CONDITION AGGRAVATED [None]
  - NASAL DISORDER [None]
  - PCO2 INCREASED [None]
  - RESPIRATORY FAILURE [None]
  - SEASONAL ALLERGY [None]
